FAERS Safety Report 7542309-9 (Version None)
Quarter: 2011Q2

REPORT INFORMATION
  Report Type: 
  Country: None (occurrence: None)
  Receive Date: 20110613
  Receipt Date: 20110602
  Transmission Date: 20111010
  Serious: Yes (Disabling)
  Sender: FDA-Public Use
  Company Number: AU-ASTRAZENECA-2011SE34213

PATIENT
  Age: 61 Year
  Sex: Female

DRUGS (5)
  1. FISH OIL [Concomitant]
     Route: 048
  2. ATACAND [Concomitant]
     Route: 048
  3. EZETIMIBE [Concomitant]
  4. CRESTOR [Suspect]
     Indication: METABOLIC DISORDER
     Route: 048
     Dates: start: 20080101, end: 20110401
  5. CARTIA XT [Concomitant]

REACTIONS (2)
  - ANXIETY [None]
  - DEPRESSION [None]
